FAERS Safety Report 6056004-9 (Version None)
Quarter: 2009Q1

REPORT INFORMATION
  Report Type: 
  Country: None (occurrence: None)
  Receive Date: 20090128
  Receipt Date: 20090113
  Transmission Date: 20090719
  Serious: Yes (Life-Threatening, Disabling)
  Sender: FDA-Public Use
  Company Number: CZ-PFIZER INC-2008155922

PATIENT

DRUGS (10)
  1. BLINDED *PLACEBO [Suspect]
     Indication: PULMONARY HYPERTENSION
     Dosage: 20 MG, 3X/DAY
     Route: 048
     Dates: start: 20080114
  2. BLINDED SILDENAFIL CITRATE [Suspect]
     Indication: PULMONARY HYPERTENSION
     Dosage: 20 MG, 3X/DAY
     Route: 048
     Dates: start: 20080114
  3. BLINDED *PLACEBO [Suspect]
     Indication: PULMONARY ARTERIAL HYPERTENSION
  4. BLINDED SILDENAFIL CITRATE [Suspect]
     Indication: PULMONARY ARTERIAL HYPERTENSION
  5. WARFARIN [Concomitant]
     Dosage: UNK
     Route: 048
     Dates: start: 20020101
  6. SIMVASTATIN [Concomitant]
     Dosage: UNK
     Route: 048
     Dates: start: 20020101
  7. HYMECROMONE [Concomitant]
     Dosage: UNK
     Route: 048
     Dates: start: 20080819
  8. PANTOPRAZOLE [Concomitant]
     Dosage: UNK
     Route: 048
     Dates: start: 20080819
  9. OTILONIUM BROMIDE [Concomitant]
     Dosage: UNK
     Route: 048
     Dates: start: 20080819
  10. CITALOPRAM [Concomitant]
     Dosage: UNK
     Route: 048
     Dates: start: 20080918

REACTIONS (2)
  - PANCREATIC DISORDER [None]
  - PANCREATITIS CHRONIC [None]
